FAERS Safety Report 20860995 (Version 1)
Quarter: 2022Q2

REPORT INFORMATION
  Report Type: Spontaneous
  Country: US (occurrence: None)
  Receive Date: 20220520
  Receipt Date: 20220520
  Transmission Date: 20220720
  Serious: Yes (Hospitalization)
  Sender: FDA-Public Use
  Company Number: None

PATIENT
  Age: 34 Year
  Sex: Female
  Weight: 47.7 kg

DRUGS (5)
  1. NITROFURANTOIN [Suspect]
     Active Substance: NITROFURANTOIN
     Indication: Urinary tract infection
     Dosage: OTHER QUANTITY : 1 CAPSULE(S);?FREQUENCY : AS NEEDED;?
     Route: 048
  2. celexa [Concomitant]
  3. emgality [Concomitant]
  4. FROVATRIPTAN [Concomitant]
     Active Substance: FROVATRIPTAN
  5. macrobid [Concomitant]

REACTIONS (3)
  - Hepatitis acute [None]
  - Abdominal pain [None]
  - Drug-induced liver injury [None]

NARRATIVE: CASE EVENT DATE: 20220515
